FAERS Safety Report 17782453 (Version 3)
Quarter: 2020Q2

REPORT INFORMATION
  Report Type: Report from Study
  Country: ES (occurrence: ES)
  Receive Date: 20200513
  Receipt Date: 20200610
  Transmission Date: 20200714
  Serious: Yes (Hospitalization)
  Sender: FDA-Public Use
  Company Number: ES-PFIZER INC-2020161893

PATIENT
  Age: 61 Year
  Sex: Male
  Weight: 91.5 kg

DRUGS (19)
  1. NIVOLUMAB [Suspect]
     Active Substance: NIVOLUMAB
     Dosage: 360, 1/3 WEEKS
     Route: 065
     Dates: start: 20200323
  2. CEFTRIAXONE. [Concomitant]
     Active Substance: CEFTRIAXONE
     Dosage: UNK
     Route: 065
     Dates: start: 20200131
  3. CARBOPLATIN. [Suspect]
     Active Substance: CARBOPLATIN
     Dosage: 750 UNK, DAILY(1/3 WEEKS)
     Route: 050
     Dates: start: 20200302
  4. METRONIDAZOLE. [Concomitant]
     Active Substance: METRONIDAZOLE
     Dosage: UNK
     Route: 065
     Dates: start: 20200131
  5. ETOPOSIDE. [Suspect]
     Active Substance: ETOPOSIDE
     Dosage: 213 UNK(DAY 1,2,3 3 WEEKS)
     Route: 065
     Dates: start: 20200114
  6. CIPROFLOXACIN. [Concomitant]
     Active Substance: CIPROFLOXACIN
     Dosage: UNK
     Route: 065
  7. CARBOPLATIN. [Suspect]
     Active Substance: CARBOPLATIN
     Dosage: 600 UNK, DAILY(1/3 WEEKS)
     Route: 050
     Dates: start: 20200323
  8. NIVOLUMAB [Suspect]
     Active Substance: NIVOLUMAB
     Dosage: 360, 1/3 WEEKS
     Route: 065
     Dates: start: 20200114
  9. ETOPOSIDE. [Suspect]
     Active Substance: ETOPOSIDE
     Dosage: 213 UNK(DAY 1,2,3 3 WEEKS)
     Route: 065
     Dates: start: 20200302
  10. TAZOCEL [Concomitant]
     Active Substance: PIPERACILLIN SODIUM\TAZOBACTAM SODIUM
     Indication: FEBRILE NEUTROPENIA
     Dosage: UNK
     Route: 042
     Dates: start: 20200404, end: 20200409
  11. QUETIAPINE. [Concomitant]
     Active Substance: QUETIAPINE
     Indication: INSOMNIA
     Dosage: 50 MG
     Dates: start: 20200123
  12. CARBOPLATIN. [Suspect]
     Active Substance: CARBOPLATIN
     Dosage: 750 UNK, DAILY(1/3 WEEKS)
     Route: 050
     Dates: start: 20200114
  13. ETOPOSIDE. [Suspect]
     Active Substance: ETOPOSIDE
     Dosage: 165 UNK(DAY 1,2,3 3 WEEKS)
     Dates: start: 20200325
  14. NIVOLUMAB [Suspect]
     Active Substance: NIVOLUMAB
     Dosage: 360, 1/3 WEEKS
     Dates: start: 20200302
  15. PIPERACILLIN SODIUM [Concomitant]
     Active Substance: PIPERACILLIN SODIUM
     Dosage: UNK
     Route: 065
  16. CIPROFLOXACIN. [Concomitant]
     Active Substance: CIPROFLOXACIN
     Dosage: UNK
     Route: 065
     Dates: start: 20200310
  17. CEFEPIME [Concomitant]
     Active Substance: CEFEPIME HYDROCHLORIDE
     Indication: FEBRILE NEUTROPENIA
     Dosage: UNK
     Route: 042
     Dates: start: 20200331, end: 20200403
  18. TAZOBACTAM [Concomitant]
     Active Substance: TAZOBACTAM
     Dosage: UNK
  19. BUSCAPINA [Concomitant]
     Indication: PAIN PROPHYLAXIS
     Dosage: 30 MG

REACTIONS (7)
  - Febrile neutropenia [Recovered/Resolved]
  - COVID-19 [Recovered/Resolved]
  - Anaemia [Unknown]
  - Nausea [Unknown]
  - Diarrhoea [Unknown]
  - Fusobacterium infection [Recovered/Resolved]
  - Mucosal inflammation [Unknown]

NARRATIVE: CASE EVENT DATE: 20200128
